FAERS Safety Report 18339965 (Version 1)
Quarter: 2020Q4

REPORT INFORMATION
  Report Type: Spontaneous
  Country: US (occurrence: US)
  Receive Date: 20201002
  Receipt Date: 20201002
  Transmission Date: 20210113
  Serious: No
  Sender: FDA-Public Use
  Company Number: US-009507513-2009USA011205

PATIENT
  Age: 54 Year
  Sex: Female

DRUGS (5)
  1. METFORMIN [Suspect]
     Active Substance: METFORMIN HYDROCHLORIDE
  2. STEGLUJAN [Suspect]
     Active Substance: ERTUGLIFLOZIN PIDOLATE\SITAGLIPTIN PHOSPHATE
  3. JANUVIA [Suspect]
     Active Substance: SITAGLIPTIN PHOSPHATE
     Dosage: 1 DOSAGE FORM, QD
     Route: 048
     Dates: start: 202008, end: 202008
  4. JARDIANCE [Suspect]
     Active Substance: EMPAGLIFLOZIN
  5. TOPIRAMATE. [Concomitant]
     Active Substance: TOPIRAMATE
     Dosage: UNSPECIFIED INHALER

REACTIONS (3)
  - Weight increased [Recovered/Resolved]
  - Hypersensitivity [Unknown]
  - Drug ineffective [Unknown]

NARRATIVE: CASE EVENT DATE: 202008
